FAERS Safety Report 13044765 (Version 1)
Quarter: 2016Q4

REPORT INFORMATION
  Report Type: Spontaneous
  Country: US (occurrence: US)
  Receive Date: 20161220
  Receipt Date: 20161220
  Transmission Date: 20170207
  Serious: No
  Sender: FDA-Public Use
  Company Number: US-ROCHE-1020743

PATIENT
  Sex: Female

DRUGS (1)
  1. ZELBORAF [Suspect]
     Active Substance: VEMURAFENIB
     Indication: MALIGNANT MELANOMA
     Route: 048

REACTIONS (7)
  - Skin papilloma [Unknown]
  - Rash [Unknown]
  - Hepatic enzyme increased [Unknown]
  - Blister [Unknown]
  - Diarrhoea [Unknown]
  - Nausea [Unknown]
  - Vision blurred [Unknown]
